FAERS Safety Report 9269289 (Version 2)
Quarter: 2013Q2

REPORT INFORMATION
  Report Type: Spontaneous
  Country: US (occurrence: US)
  Receive Date: 20130503
  Receipt Date: 20130531
  Transmission Date: 20140414
  Serious: Yes (Other)
  Sender: FDA-Public Use
  Company Number: US-PFIZER INC-2013136765

PATIENT
  Age: 79 Year
  Sex: Female
  Weight: 50 kg

DRUGS (3)
  1. PRISTIQ [Suspect]
     Indication: DEPRESSION
     Dosage: 50 MG, DAILY
     Dates: end: 20130427
  2. SIMVASTATIN [Concomitant]
     Indication: BLOOD CHOLESTEROL INCREASED
     Dosage: 20 MG, DAILY
  3. AMLODIPINE BESILATE [Concomitant]
     Indication: HYPERTENSION
     Dosage: 5 MG, DAILY

REACTIONS (10)
  - Drug withdrawal syndrome [Unknown]
  - Hallucination, auditory [Unknown]
  - Feeling abnormal [Unknown]
  - Nightmare [Unknown]
  - Hyperhidrosis [Unknown]
  - Dry mouth [Unknown]
  - Middle insomnia [Unknown]
  - Headache [Unknown]
  - Dizziness [Unknown]
  - Diarrhoea [Unknown]
